FAERS Safety Report 6879906-X (Version None)
Quarter: 2010Q3

REPORT INFORMATION
  Report Type: 
  Country: None (occurrence: None)
  Receive Date: 20100728
  Receipt Date: 20100303
  Transmission Date: 20110219
  Serious: No
  Sender: FDA-Public Use
  Company Number: US-BRISTOL-MYERS SQUIBB COMPANY-15002538

PATIENT

DRUGS (1)
  1. SINEMET CR [Suspect]
     Dosage: 1 DF - 200/50 MG

REACTIONS (2)
  - ABASIA [None]
  - DRUG INEFFECTIVE [None]
